FAERS Safety Report 4482326-9 (Version None)
Quarter: 2004Q4

REPORT INFORMATION
  Report Type: 
  Country: None (occurrence: None)
  Receive Date: 20041022
  Receipt Date: 20041005
  Transmission Date: 20050328
  Serious: Yes (Hospitalization, Disabling)
  Sender: FDA-Public Use
  Company Number: US-MERCK-0410USA00530

PATIENT
  Age: 52 Year
  Sex: Female
  Weight: 59 kg

DRUGS (7)
  1. VIOXX [Suspect]
     Indication: OSTEOARTHRITIS
     Route: 048
     Dates: start: 20020312, end: 20020401
  2. VIOXX [Suspect]
     Indication: FIBROMYALGIA
     Route: 048
     Dates: start: 20020312, end: 20020401
  3. LEVOXYL [Concomitant]
     Route: 065
  4. PREMARIN [Concomitant]
     Route: 065
  5. CYCLOBENZAPRINE HYDROCHLORIDE [Concomitant]
     Indication: SLEEP DISORDER
     Route: 065
     Dates: start: 20020312
  6. CYCLOBENZAPRINE HYDROCHLORIDE [Concomitant]
     Indication: MUSCLE SPASMS
     Route: 065
     Dates: start: 20020312
  7. IRON (UNSPECIFIED) [Concomitant]
     Route: 065

REACTIONS (4)
  - BILIARY CIRRHOSIS PRIMARY [None]
  - CEREBROVASCULAR ACCIDENT [None]
  - HYPERTENSION [None]
  - TRANSIENT ISCHAEMIC ATTACK [None]
